FAERS Safety Report 18193577 (Version 1)
Quarter: 2020Q3

REPORT INFORMATION
  Report Type: Spontaneous
  Country: FR (occurrence: FR)
  Receive Date: 20200825
  Receipt Date: 20200825
  Transmission Date: 20201103
  Serious: Yes (Hospitalization)
  Sender: FDA-Public Use
  Company Number: FR-PFIZER INC-2020325353

PATIENT
  Age: 15 Year
  Sex: Male

DRUGS (2)
  1. XANAX [Suspect]
     Active Substance: ALPRAZOLAM
     Indication: INTENTIONAL PRODUCT MISUSE
     Dosage: 8 DF
     Route: 048
     Dates: start: 2018, end: 202003
  2. TRAMADOL HCL [Suspect]
     Active Substance: TRAMADOL HYDROCHLORIDE
     Indication: INTENTIONAL PRODUCT MISUSE
     Dosage: 1 BOX TAKEN IN 8 DAYS
     Route: 048
     Dates: start: 202003, end: 202003

REACTIONS (4)
  - Product use issue [Unknown]
  - Intentional product misuse [Unknown]
  - Poisoning deliberate [Recovered/Resolved]
  - Off label use [Unknown]

NARRATIVE: CASE EVENT DATE: 2018
